FAERS Safety Report 8429837-9 (Version None)
Quarter: 2012Q2

REPORT INFORMATION
  Report Type: 
  Country: None (occurrence: None)
  Receive Date: 20120612
  Receipt Date: 20120529
  Transmission Date: 20120825
  Serious: Yes (Hospitalization)
  Sender: FDA-Public Use
  Company Number: US-WATSON-2012-10031

PATIENT
  Age: 67 Year
  Sex: Female

DRUGS (2)
  1. LIDOCAINE [Suspect]
     Indication: NECK PAIN
     Dosage: 12 MG BETAMETHASONE IN 1% LIDOCAINE CERVICAL EPIDURAL INJECTION
     Route: 008
  2. BETAMETHASONE [Suspect]
     Indication: NECK PAIN
     Dosage: 12 MG BETAMETHASONE IN 1% LIDOCAINE CERVICAL EPIDURAL INJECTION
     Route: 008

REACTIONS (1)
  - CARDIO-RESPIRATORY ARREST [None]
